FAERS Safety Report 5155719-4 (Version None)
Quarter: 2006Q4

REPORT INFORMATION
  Report Type: 
  Country: None (occurrence: None)
  Receive Date: 20061113
  Receipt Date: 20061030
  Transmission Date: 20070319
  Serious: Yes (Other)
  Sender: FDA-Public Use
  Company Number: 2006132453

PATIENT
  Age: 32 Year
  Sex: Female
  Weight: 83.9154 kg

DRUGS (1)
  1. COOL MINT LISTERINE (METHOL, METHYL SALICYLATE, EUCALYPTOL, THYMOL) [Suspect]
     Indication: DENTAL DISORDER PROPHYLAXIS
     Dosage: 1/2 CAPFUL 2X THE 1ST DAY, 1X THE 2ND DA, ORAL
     Route: 048
     Dates: start: 20060803, end: 20060801

REACTIONS (12)
  - BURNING SENSATION [None]
  - CHEILITIS [None]
  - DRY THROAT [None]
  - LIP DRY [None]
  - LIP EXFOLIATION [None]
  - ODYNOPHAGIA [None]
  - OPEN WOUND [None]
  - ORAL PAIN [None]
  - SKIN DISCOLOURATION [None]
  - SWOLLEN TONGUE [None]
  - THERMAL BURN [None]
  - TONGUE DISCOLOURATION [None]
